FAERS Safety Report 8983195 (Version 1)
Quarter: 2012Q4

REPORT INFORMATION
  Report Type: 
  Country: JP (occurrence: JP)
  Receive Date: 20121224
  Receipt Date: 20121224
  Transmission Date: 20130627
  Serious: Yes (Other)
  Sender: FDA-Public Use
  Company Number: JP-ASTELLAS-2012JP011950

PATIENT
  Age: 71 Year
  Sex: Female

DRUGS (1)
  1. PROGRAF [Suspect]
     Indication: MYASTHENIA GRAVIS
     Dosage: 2 mg, Unknown/D
     Route: 048

REACTIONS (3)
  - Drug ineffective [Unknown]
  - Intentional drug misuse [Unknown]
  - Myasthenia gravis [Recovered/Resolved]
